FAERS Safety Report 4570377-5 (Version None)
Quarter: 2005Q1

REPORT INFORMATION
  Report Type: 
  Country: None (occurrence: None)
  Receive Date: 20050126
  Receipt Date: 20050126
  Transmission Date: 20050727
  Serious: Yes (Life-Threatening)
  Sender: FDA-Public Use
  Company Number: None

PATIENT
  Age: 40 Year
  Sex: Male
  Weight: 77.1115 kg

DRUGS (2)
  1. VICODIN [Suspect]
     Indication: ROTATOR CUFF SYNDROME
     Dosage: 7.5/500 # 40  TWO 94 - 60  HOME PT
  2. VICODIN [Suspect]
     Indication: SURGERY
     Dosage: 7.5/500 # 40  TWO 94 - 60  HOME PT

REACTIONS (2)
  - HAEMORRHAGIC DISORDER [None]
  - PHARMACEUTICAL PRODUCT COMPLAINT [None]
